FAERS Safety Report 14239708 (Version 2)
Quarter: 2018Q1

REPORT INFORMATION
  Report Type: Spontaneous
  Country: PT (occurrence: PT)
  Receive Date: 20171130
  Receipt Date: 20180109
  Transmission Date: 20180508
  Serious: Yes (Hospitalization, Other)
  Sender: FDA-Public Use
  Company Number: PT-GLAXOSMITHKLINE-PT2017GSK172602

PATIENT
  Age: 34 Year
  Sex: Male

DRUGS (2)
  1. VICTAN [Concomitant]
     Active Substance: ETHYL LOFLAZEPATE
     Dosage: 2 MG, UNK
     Route: 048
  2. WELLBUTRIN XL [Suspect]
     Active Substance: BUPROPION HYDROCHLORIDE
     Indication: PRODUCT USED FOR UNKNOWN INDICATION
     Dosage: UNK
     Route: 048
     Dates: start: 20171010, end: 20171019

REACTIONS (9)
  - Hepatomegaly [Unknown]
  - Myositis [Recovered/Resolved with Sequelae]
  - Hepatitis toxic [Unknown]
  - Transaminases increased [Unknown]
  - Pericarditis [Recovered/Resolved with Sequelae]
  - Rhabdomyolysis [Recovered/Resolved with Sequelae]
  - Dysstasia [Unknown]
  - Nausea [Unknown]
  - Gait inability [Unknown]

NARRATIVE: CASE EVENT DATE: 20171028
